FAERS Safety Report 9871129 (Version 1)
Quarter: 2014Q1

REPORT INFORMATION
  Report Type: Spontaneous
  Country: US (occurrence: US)
  Receive Date: 20140205
  Receipt Date: 20140205
  Transmission Date: 20141002
  Serious: Yes (Hospitalization, Other)
  Sender: FDA-Public Use
  Company Number: US-GILEAD-2013-0078867

PATIENT
  Age: 40 Year
  Sex: Male

DRUGS (2)
  1. STRIBILD [Suspect]
     Indication: HIV INFECTION
     Dosage: UNK
     Dates: start: 201304
  2. VICODIN [Concomitant]
     Indication: PAIN
     Dosage: UNK
     Dates: start: 201304

REACTIONS (1)
  - Pancreatitis [Unknown]
